FAERS Safety Report 18611252 (Version 2)
Quarter: 2021Q3

REPORT INFORMATION
  Report Type: Spontaneous
  Country: JP (occurrence: JP)
  Receive Date: 20201214
  Receipt Date: 20210811
  Transmission Date: 20211014
  Serious: Yes (Hospitalization, Other)
  Sender: FDA-Public Use
  Company Number: JP-TEVA-2020-JP-1857822

PATIENT
  Age: 62 Year
  Sex: Female

DRUGS (2)
  1. GAZYVA [Concomitant]
     Active Substance: OBINUTUZUMAB
     Indication: FOLLICULAR LYMPHOMA
     Dosage: (6 CYCLE)
     Route: 041
  2. TREAKISYM [Suspect]
     Active Substance: BENDAMUSTINE HYDROCHLORIDE
     Indication: FOLLICULAR LYMPHOMA
     Dosage: (6 CYCLE)
     Route: 041

REACTIONS (2)
  - Cytomegalovirus chorioretinitis [Recovered/Resolved]
  - Vitreous opacities [Recovered/Resolved]
